FAERS Safety Report 20788776 (Version 1)
Quarter: 2022Q2

REPORT INFORMATION
  Report Type: Spontaneous
  Country: US (occurrence: None)
  Receive Date: 20220504
  Receipt Date: 20220504
  Transmission Date: 20220721
  Serious: Yes (Hospitalization)
  Sender: FDA-Public Use
  Company Number: None

PATIENT
  Sex: Female

DRUGS (1)
  1. TACROLIMUS [Suspect]
     Active Substance: TACROLIMUS
     Indication: Renal transplant
     Dosage: OTHER QUANTITY : 1 IN  AM/2 IN PM;?FREQUENCY : TWICE A DAY;?
     Route: 048
     Dates: start: 202104

REACTIONS (4)
  - Weight decreased [None]
  - Restlessness [None]
  - Confusional state [None]
  - Nausea [None]
